FAERS Safety Report 4961734-3 (Version None)
Quarter: 2006Q1

REPORT INFORMATION
  Report Type: 
  Country: None (occurrence: None)
  Receive Date: 20060329
  Receipt Date: 20060320
  Transmission Date: 20060701
  Serious: Yes (Other)
  Sender: FDA-Public Use
  Company Number: FRWYE489221MAR06

PATIENT
  Age: 78 Year
  Sex: Female

DRUGS (3)
  1. EFFEXOR [Suspect]
     Dosage: 50 MG 1X PER 1 DAY
     Route: 048
     Dates: start: 20060306, end: 20060309
  2. INDAPAMIDE [Concomitant]
  3. IRBESARTAN [Concomitant]

REACTIONS (5)
  - CONDITION AGGRAVATED [None]
  - HEADACHE [None]
  - HYPERTENSION [None]
  - PALPITATIONS [None]
  - TREMOR [None]
